FAERS Safety Report 13755242 (Version 1)
Quarter: 2017Q3

REPORT INFORMATION
  Report Type: Spontaneous
  Country: DE (occurrence: DE)
  Receive Date: 20170714
  Receipt Date: 20170714
  Transmission Date: 20171127
  Serious: Yes (Hospitalization, Other)
  Sender: FDA-Public Use
  Company Number: DE-AUROBINDO-AUR-APL-2015-04327

PATIENT
  Age: 33 Year
  Sex: Female

DRUGS (22)
  1. ARIPIPRAZOLE. [Suspect]
     Active Substance: ARIPIPRAZOLE
     Dosage: 15 MG, DAILY
     Route: 048
     Dates: start: 20141219, end: 20141221
  2. QUETIAPIN [Suspect]
     Active Substance: QUETIAPINE
     Dosage: 250 MG, DAILY
     Route: 048
     Dates: start: 20150219, end: 20150304
  3. ABILIFY [Suspect]
     Active Substance: ARIPIPRAZOLE
     Dosage: 400 MG, DAILY
     Route: 030
     Dates: start: 20150306
  4. QUETIAPIN [Suspect]
     Active Substance: QUETIAPINE
     Dosage: 200 MG, DAILY
     Route: 048
     Dates: start: 20150317
  5. QUETIAPINE. [Suspect]
     Active Substance: QUETIAPINE
     Indication: PRODUCT USED FOR UNKNOWN INDICATION
     Dosage: 50 MG, UNK
     Route: 065
     Dates: start: 20150121, end: 20150121
  6. ARIPIPRAZOLE. [Suspect]
     Active Substance: ARIPIPRAZOLE
     Indication: PRODUCT USED FOR UNKNOWN INDICATION
     Dosage: 5 MG, DAILY
     Route: 048
     Dates: start: 20140930
  7. ARIPIPRAZOLE. [Suspect]
     Active Substance: ARIPIPRAZOLE
     Dosage: 5 MG, DAILY
     Route: 048
     Dates: start: 20141226, end: 20150101
  8. QUETIAPIN [Suspect]
     Active Substance: QUETIAPINE
     Dosage: 400 MG, DAILY
     Route: 048
     Dates: start: 20141113, end: 20150212
  9. ABILIFY [Suspect]
     Active Substance: ARIPIPRAZOLE
     Dosage: 300 MG, EVERY 28 DAY
     Route: 030
     Dates: start: 20150402
  10. L-THYROXIN [Concomitant]
     Active Substance: LEVOTHYROXINE SODIUM
     Indication: THYROID DISORDER
     Dosage: 75 ?G, DAILY
     Route: 048
  11. ARIPIPRAZOLE. [Suspect]
     Active Substance: ARIPIPRAZOLE
     Dosage: 10 MG, DAILY
     Route: 048
     Dates: start: 20151222, end: 20151225
  12. ARIPIPRAZOLE. [Suspect]
     Active Substance: ARIPIPRAZOLE
     Dosage: 20 MG, DAILY
     Route: 048
     Dates: start: 20141025, end: 20141218
  13. QUETIAPIN [Suspect]
     Active Substance: QUETIAPINE
     Dosage: 150 MG, DAILY
     Route: 048
     Dates: start: 20150313, end: 20150317
  14. ABILIFY [Suspect]
     Active Substance: ARIPIPRAZOLE
     Indication: PRODUCT USED FOR UNKNOWN INDICATION
     Dosage: 400 MG, DAILY
     Route: 030
     Dates: start: 20141212
  15. ABILIFY [Suspect]
     Active Substance: ARIPIPRAZOLE
     Dosage: 400 MG, DAILY
     Route: 030
     Dates: start: 20150109
  16. QUETIAPIN [Suspect]
     Active Substance: QUETIAPINE
     Indication: PRODUCT USED FOR UNKNOWN INDICATION
     Dosage: 125-400 MG DAILY
     Route: 048
     Dates: start: 20141104, end: 20141112
  17. ABILIFY [Suspect]
     Active Substance: ARIPIPRAZOLE
     Dosage: 400 MG, DAILY
     Route: 030
     Dates: start: 20150206
  18. ARIPIPRAZOLE. [Suspect]
     Active Substance: ARIPIPRAZOLE
     Dosage: 10 MG, DAILY
     Route: 048
     Dates: start: 20141001
  19. QUETIAPIN [Suspect]
     Active Substance: QUETIAPINE
     Dosage: 300 MG, DAILY
     Route: 048
     Dates: start: 20150213, end: 20150218
  20. QUETIAPIN [Suspect]
     Active Substance: QUETIAPINE
     Dosage: 200 MG, DAILY
     Route: 048
     Dates: start: 20150305, end: 20150312
  21. ARIPIPRAZOLE. [Suspect]
     Active Substance: ARIPIPRAZOLE
     Dosage: 15 MG, DAILY
     Route: 048
     Dates: start: 20141002, end: 20141024
  22. QUETIAPIN [Suspect]
     Active Substance: QUETIAPINE
     Dosage: 50 MG, UNK
     Route: 048
     Dates: start: 20150121

REACTIONS (2)
  - Sinus tachycardia [Recovered/Resolved]
  - Heart rate increased [Unknown]

NARRATIVE: CASE EVENT DATE: 20141214
